FAERS Safety Report 17855670 (Version 5)
Quarter: 2020Q3

REPORT INFORMATION
  Report Type: Spontaneous
  Country: SK (occurrence: SK)
  Receive Date: 20200603
  Receipt Date: 20200721
  Transmission Date: 20201103
  Serious: Yes (Hospitalization, Other)
  Sender: FDA-Public Use
  Company Number: SK-MYLANLABS-2020M1053393

PATIENT
  Age: 43 Year
  Sex: Female

DRUGS (4)
  1. IMATINIB. [Suspect]
     Active Substance: IMATINIB MESYLATE
     Indication: CHRONIC MYELOID LEUKAEMIA
     Dosage: UNK
     Dates: start: 200304, end: 201012
  2. IMATINIB. [Suspect]
     Active Substance: IMATINIB MESYLATE
     Dosage: 600 MG, UNK
     Dates: start: 200304, end: 201012
  3. IMATINIB. [Suspect]
     Active Substance: IMATINIB MESYLATE
     Dosage: 600 MILLIGRAM, QD
     Route: 048
     Dates: start: 200601, end: 201012
  4. IMATINIB. [Suspect]
     Active Substance: IMATINIB MESYLATE
     Dosage: 400 MILLIGRAM, QD
     Route: 048
     Dates: start: 200304, end: 200601

REACTIONS (14)
  - Muscle spasms [Recovered/Resolved]
  - Lacrimation increased [Unknown]
  - Headache [Recovering/Resolving]
  - Toxicity to various agents [Unknown]
  - Myalgia [Recovered/Resolved]
  - Fluid retention [Recovered/Resolved]
  - Periorbital oedema [Unknown]
  - Face oedema [Unknown]
  - Autoimmune haemolytic anaemia [Recovered/Resolved]
  - Hypokalaemia [Recovered/Resolved]
  - Philadelphia chromosome positive [Recovering/Resolving]
  - Weight increased [Unknown]
  - Generalised oedema [Recovered/Resolved]
  - Arthralgia [Recovered/Resolved]
